FAERS Safety Report 24006812 (Version 1)
Quarter: 2024Q2

REPORT INFORMATION
  Report Type: Spontaneous
  Country: US (occurrence: US)
  Receive Date: 20240624
  Receipt Date: 20240624
  Transmission Date: 20240716
  Serious: No
  Sender: FDA-Public Use
  Company Number: US-009507513-2406USA006776

PATIENT
  Age: 70 Year
  Sex: Female

DRUGS (3)
  1. NOXAFIL [Suspect]
     Active Substance: POSACONAZOLE
     Indication: Aspergillus infection
     Route: 048
  2. KEYTRUDA [Concomitant]
     Active Substance: PEMBROLIZUMAB
     Indication: Non-small cell lung cancer stage IV
  3. PREDNISONE [Concomitant]
     Active Substance: PREDNISONE
     Indication: Chronic obstructive pulmonary disease

REACTIONS (1)
  - Drug ineffective [Unknown]
